FAERS Safety Report 4609775-X (Version None)
Quarter: 2005Q1

REPORT INFORMATION
  Report Type: 
  Country: None (occurrence: None)
  Receive Date: 20050314
  Receipt Date: 20050314
  Transmission Date: 20050727
  Serious: Yes (Life-Threatening, Hospitalization, Disabling)
  Sender: FDA-Public Use
  Company Number: None

PATIENT
  Age: 87 Year
  Sex: Male
  Weight: 77.1115 kg

DRUGS (2)
  1. VIOXX [Suspect]
     Indication: PAIN
     Dosage: 25 MG/BID, 50 MG BID
     Dates: start: 20040201
  2. VIOXX [Suspect]
     Indication: PAIN
     Dosage: 25 MG/BID, 50 MG BID
     Dates: start: 20040301

REACTIONS (2)
  - ACTIVITIES OF DAILY LIVING IMPAIRED [None]
  - CEREBROVASCULAR ACCIDENT [None]
